FAERS Safety Report 13646276 (Version 1)
Quarter: 2017Q2

REPORT INFORMATION
  Report Type: Spontaneous
  Country: US (occurrence: US)
  Receive Date: 20170612
  Receipt Date: 20170612
  Transmission Date: 20170830
  Serious: No
  Sender: FDA-Public Use
  Company Number: None

PATIENT
  Age: 45 Year
  Sex: Male
  Weight: 85.95 kg

DRUGS (2)
  1. AMLODIPINE BESYLATE. [Suspect]
     Active Substance: AMLODIPINE BESYLATE
     Indication: HYPERTENSION
     Dosage: ?          QUANTITY:1 TABLET(S);?
     Route: 048
     Dates: start: 20170508, end: 20170607
  2. CENTRUM CHEWABLES [Concomitant]

REACTIONS (6)
  - Panic attack [None]
  - Anxiety [None]
  - Chest pain [None]
  - Loss of consciousness [None]
  - Paraesthesia [None]
  - Peripheral coldness [None]

NARRATIVE: CASE EVENT DATE: 20170508
